FAERS Safety Report 7137968-9 (Version None)
Quarter: 2010Q4

REPORT INFORMATION
  Report Type: 
  Country: None (occurrence: None)
  Receive Date: 20101118
  Receipt Date: 20101104
  Transmission Date: 20110411
  Serious: Yes (Life-Threatening, Hospitalization, Disabling, Other)
  Sender: FDA-Public Use
  Company Number: 2010PV000087

PATIENT
  Age: 10 Year
  Sex: Male
  Weight: 36 kg

DRUGS (6)
  1. DEPOCYT [Suspect]
     Indication: LEUKAEMIC INFILTRATION BRAIN
     Dosage: 35 MG;X2;INTH
     Route: 037
     Dates: start: 20050811, end: 20050825
  2. ONCASPAR [Suspect]
     Dosage: IM
     Route: 030
     Dates: start: 20050804, end: 20050804
  3. METHOTREXATE [Concomitant]
  4. DEXAMETHASONE [Concomitant]
  5. ARA-C [Concomitant]
  6. HYDROCORTISONE [Concomitant]

REACTIONS (1)
  - CEREBRAL VENOUS THROMBOSIS [None]
